FAERS Safety Report 19432401 (Version 1)
Quarter: 2021Q2

REPORT INFORMATION
  Report Type: Spontaneous
  Country: JP (occurrence: JP)
  Receive Date: 20210618
  Receipt Date: 20210618
  Transmission Date: 20210717
  Serious: Yes (Other)
  Sender: FDA-Public Use
  Company Number: JP-AMGEN-JPNCT2021091981

PATIENT

DRUGS (2)
  1. ROXADUSTAT. [Suspect]
     Active Substance: ROXADUSTAT
     Indication: ANAEMIA
     Dosage: UNK
     Route: 048
  2. DARBEPOETIN ALFA [Suspect]
     Active Substance: DARBEPOETIN ALFA
     Indication: ANAEMIA
     Dosage: UNK
     Route: 065

REACTIONS (8)
  - Thrombosis in device [Unknown]
  - Shunt occlusion [Unknown]
  - Diarrhoea [Unknown]
  - Hypertension [Unknown]
  - Product administration error [Unknown]
  - Dizziness [Unknown]
  - Nausea [Unknown]
  - Hepatic function abnormal [Unknown]
